FAERS Safety Report 9211081 (Version 1)
Quarter: 2013Q2

REPORT INFORMATION
  Report Type: Report from Study
  Country: US (occurrence: US)
  Receive Date: 20130404
  Receipt Date: 20130404
  Transmission Date: 20140414
  Serious: Yes (Hospitalization, Other)
  Sender: FDA-Public Use
  Company Number: US-AMGEN-US270044

PATIENT
  Age: 73 Year
  Sex: Male

DRUGS (17)
  1. DENOSUMAB [Suspect]
     Indication: PROSTATE CANCER
     Dosage: UNK UNK, Q4WK
     Route: 058
     Dates: start: 20060404, end: 20080310
  2. ALLOPURINOL [Concomitant]
     Dosage: 100 MG, QD
     Dates: start: 1986
  3. ASPIRIN [Concomitant]
     Dosage: 325 MG, QD
     Route: 048
     Dates: start: 200507
  4. CALCIUM WITH VITAMIN D [Concomitant]
     Dosage: 600 MG, BID
     Route: 048
     Dates: start: 20060411
  5. BICALUTAMIDE [Concomitant]
     Dosage: 50 MG, UNK
     Dates: start: 20080117
  6. CARVEDILOL [Concomitant]
     Dosage: UNK UNK, BID
     Dates: start: 20060425
  7. DIGOXIN [Concomitant]
     Dosage: .125 MG, QD
     Route: 048
     Dates: start: 200507
  8. FAMOTIDINE [Concomitant]
     Dosage: 40 MG, UNK
     Dates: start: 20071217
  9. FUROSEMIDE [Concomitant]
     Dosage: UNK UNK, QD
     Route: 048
     Dates: start: 1986
  10. FUROSEMIDE [Concomitant]
     Dosage: 80 MG, QD
     Route: 048
     Dates: start: 1986
  11. GLIBENCLAMIDE [Concomitant]
     Dosage: 1.25 MG, BID
     Route: 048
     Dates: start: 1991
  12. HYDROCODONE W/ACETAMINOPHEN [Concomitant]
     Dosage: 500 MG, UNK
     Dates: start: 20061220
  13. IRON [Concomitant]
     Dosage: 325 MG, QD
     Route: 048
     Dates: start: 200507
  14. TERAZOSIN HYDROCHLORIDE [Concomitant]
     Dosage: 2 MG, QD
     Route: 048
     Dates: start: 20060817
  15. ERGOCALCIFEROL [Concomitant]
     Dosage: 200 MG, BID
     Route: 048
  16. LOVASTATIN [Concomitant]
     Dosage: 40 MG, QD
     Route: 048
     Dates: start: 20060817
  17. RANITIDINE [Concomitant]
     Dosage: 300 MG, QD
     Route: 048
     Dates: start: 20060817

REACTIONS (2)
  - Osteonecrosis of jaw [Not Recovered/Not Resolved]
  - Abscess oral [Recovered/Resolved]
